FAERS Safety Report 6600694-6 (Version None)
Quarter: 2010Q1

REPORT INFORMATION
  Report Type: 
  Country: None (occurrence: None)
  Receive Date: 20100223
  Receipt Date: 20100223
  Transmission Date: 20100710
  Serious: No
  Sender: FDA-Public Use
  Company Number: None

PATIENT
  Age: 85 Year
  Sex: Male
  Weight: 72.5755 kg

DRUGS (1)
  1. AZITHROMYCIN [Suspect]
     Dates: start: 20100118

REACTIONS (6)
  - DIZZINESS [None]
  - EAR DISORDER [None]
  - EFFUSION [None]
  - HYPOACUSIS [None]
  - LACRIMATION INCREASED [None]
  - OCULAR HYPERAEMIA [None]
